FAERS Safety Report 20992024 (Version 2)
Quarter: 2022Q3

REPORT INFORMATION
  Report Type: Report from Study
  Country: BR (occurrence: BR)
  Receive Date: 20220622
  Receipt Date: 20220715
  Transmission Date: 20221027
  Serious: No
  Sender: FDA-Public Use
  Company Number: BR-NOVARTISPH-NVSC2022BR139293

PATIENT
  Sex: Female

DRUGS (1)
  1. KISQALI [Suspect]
     Active Substance: RIBOCICLIB
     Indication: Product used for unknown indication
     Dosage: UNK (STOP: BEGINNING OF 2022)
     Route: 065

REACTIONS (5)
  - Neoplasm [Not Recovered/Not Resolved]
  - Bone pain [Unknown]
  - Pain in extremity [Unknown]
  - Back pain [Unknown]
  - Drug ineffective [Unknown]
